FAERS Safety Report 24454661 (Version 2)
Quarter: 2024Q4

REPORT INFORMATION
  Report Type: Report from Study
  Country: US (occurrence: US)
  Receive Date: 20241017
  Receipt Date: 20241018
  Transmission Date: 20250115
  Serious: No
  Sender: ROCHE
  Company Number: US-ROCHE-3478297

PATIENT
  Age: 34 Year
  Sex: Male

DRUGS (2)
  1. RITUXAN [Suspect]
     Active Substance: RITUXIMAB
     Indication: Demyelination
     Dosage: DATE OF TREATMENT: 16/JUN/2020, 07/JUL/2020, 28/JUL/2020, 18/AUG/2020
     Route: 065
  2. RITUXAN [Suspect]
     Active Substance: RITUXIMAB
     Route: 065
     Dates: start: 20220727

REACTIONS (2)
  - Off label use [Unknown]
  - No adverse event [Unknown]
